FAERS Safety Report 9536084 (Version 1)
Quarter: 2013Q2

REPORT INFORMATION
  Report Type: Spontaneous
  Country: US (occurrence: None)
  Receive Date: 20130507
  Receipt Date: 20130507
  Transmission Date: 20140414
  Serious: No
  Sender: FDA-Public Use
  Company Number: PHEH2012US025657

PATIENT
  Age: 54 Year
  Sex: Female

DRUGS (8)
  1. AFINITOR (RAD) [Suspect]
     Indication: ANGIOMYOLIPOMA
     Route: 048
     Dates: start: 20121129
  2. LAMICTAL (LAMOTRIGINE) [Concomitant]
  3. RITALIN (METHYLPHENIDATE HYDROCHLORIDE) [Concomitant]
  4. CALCITROL (CALCIUM CARBONATE, ERGOCALCIFEROL, RETINOL) [Concomitant]
  5. SYNTHROID (LEVOTHYROXINE SODIUM) [Concomitant]
  6. RISPERDAL (RISPERDONE) [Concomitant]
  7. ATIVAN (LORAZEPAM) [Concomitant]
  8. DEPAKOTE (VALPROATE SEMISODIUM) [Concomitant]

REACTIONS (5)
  - Cold sweat [None]
  - Sleep disorder [None]
  - Anxiety [None]
  - Panic attack [None]
  - Tremor [None]
